FAERS Safety Report 15295607 (Version 4)
Quarter: 2018Q4

REPORT INFORMATION
  Report Type: Spontaneous
  Country: US (occurrence: US)
  Receive Date: 20180820
  Receipt Date: 20181005
  Transmission Date: 20190204
  Serious: Yes (Hospitalization, Other)
  Sender: FDA-Public Use
  Company Number: US-SA-2018SA225111

PATIENT
  Age: 18 Year
  Sex: Male

DRUGS (3)
  1. DUPIXENT [Suspect]
     Active Substance: DUPILUMAB
     Dosage: 300 MG, QOW
     Route: 058
     Dates: start: 20180806, end: 20180809
  2. DUPIXENT [Suspect]
     Active Substance: DUPILUMAB
     Indication: DERMATITIS ATOPIC
     Dosage: UNK
     Dates: start: 20180713
  3. DUPIXENT [Suspect]
     Active Substance: DUPILUMAB
     Dosage: 300 MG, QOW
     Route: 058
     Dates: start: 20180827

REACTIONS (8)
  - Appendiceal abscess [Recovering/Resolving]
  - Colitis [Unknown]
  - Conjunctivitis [Not Recovered/Not Resolved]
  - Vomiting [Recovered/Resolved]
  - Appendix disorder [Recovering/Resolving]
  - Eye pain [Not Recovered/Not Resolved]
  - Salmonellosis [Unknown]
  - Diarrhoea [Unknown]

NARRATIVE: CASE EVENT DATE: 201808
